FAERS Safety Report 6473785-0 (Version None)
Quarter: 2009Q4

REPORT INFORMATION
  Report Type: 
  Country: None (occurrence: None)
  Receive Date: 20091204
  Receipt Date: 20091126
  Transmission Date: 20100525
  Serious: Yes (Disabling)
  Sender: FDA-Public Use
  Company Number: GB-ROCHE-613615

PATIENT
  Age: 78 Year
  Sex: Male
  Weight: 90 kg

DRUGS (5)
  1. BONIVA [Suspect]
     Dosage: FREQUENCY :1 MONTHS, ACTION TAKEN WITH DRUG:WITHDRAWN
     Route: 048
     Dates: start: 20080623, end: 20081224
  2. ALENDRONIC ACID [Suspect]
     Dosage: FREQUENCY :1 WEEKS,ACTION TAKEN WITH DRUG:WITHDRAWN
     Route: 048
     Dates: start: 20070417, end: 20080623
  3. NEOSTIGMINE [Concomitant]
     Indication: MYASTHENIA GRAVIS
     Route: 048
     Dates: start: 20020101
  4. PREDNISOLONE [Concomitant]
     Indication: MYASTHENIA GRAVIS
     Route: 048
     Dates: start: 20050101
  5. PYRIDOSTIGMINE BROMIDE [Concomitant]
     Indication: MYASTHENIA GRAVIS
     Route: 048
     Dates: start: 20050101

REACTIONS (3)
  - ANXIETY [None]
  - DEPRESSION [None]
  - FATIGUE [None]
